APPROVED DRUG PRODUCT: DISULFIRAM
Active Ingredient: DISULFIRAM
Strength: 500MG
Dosage Form/Route: TABLET;ORAL
Application: A086890 | Product #001
Applicant: WATSON LABORATORIES INC AN INDIRECT WHOLLY OWNED SUB OF TEVA PHARMACEUTICALS USA INC
Approved: Approved Prior to Jan 1, 1982 | RLD: No | RS: No | Type: DISCN